FAERS Safety Report 7060345-6 (Version None)
Quarter: 2010Q4

REPORT INFORMATION
  Report Type: 
  Country: None (occurrence: None)
  Receive Date: 20101025
  Receipt Date: 20101013
  Transmission Date: 20110411
  Serious: Yes (Hospitalization)
  Sender: FDA-Public Use
  Company Number: B0674190A

PATIENT
  Sex: Female

DRUGS (12)
  1. VALTREX [Suspect]
     Indication: HERPES ZOSTER
     Dosage: 500MG PER DAY
     Route: 048
     Dates: start: 20100901, end: 20100906
  2. DEPAS [Concomitant]
     Indication: SLEEP DISORDER
     Dosage: .5MG PER DAY
     Route: 048
  3. SENNOSIDE [Concomitant]
     Route: 048
  4. POLARAMINE [Concomitant]
     Indication: PRURITUS
     Dosage: 4MG PER DAY
     Route: 048
  5. CYANOCOBALAMIN [Concomitant]
  6. 8-HOUR BAYER [Concomitant]
     Indication: ARTERIOSCLEROSIS CORONARY ARTERY
     Route: 048
  7. AMLODIN [Concomitant]
     Indication: HYPERTENSION
     Dosage: 5NG PER DAY
     Route: 048
  8. ALOSITOL [Concomitant]
     Dosage: 100MG PER DAY
     Route: 048
  9. ONEALFA [Concomitant]
     Route: 061
     Dates: start: 20100901
  10. FOSRENOL [Concomitant]
     Indication: BLOOD PHOSPHORUS INCREASED
     Dosage: 1500MG PER DAY
     Route: 048
  11. GENTACIN [Concomitant]
     Route: 061
     Dates: start: 20100901
  12. AZUNOL [Concomitant]
     Route: 061
     Dates: start: 20100901

REACTIONS (10)
  - AFFECT LABILITY [None]
  - AGITATION [None]
  - ASTHENIA [None]
  - CONFUSIONAL STATE [None]
  - COORDINATION ABNORMAL [None]
  - DELIRIUM [None]
  - DIARRHOEA [None]
  - ENCEPHALOPATHY [None]
  - NAUSEA [None]
  - SPEECH DISORDER [None]
